FAERS Safety Report 7215450-8 (Version None)
Quarter: 2011Q1

REPORT INFORMATION
  Report Type: 
  Country: None (occurrence: None)
  Receive Date: 20110107
  Receipt Date: 20101231
  Transmission Date: 20110831
  Serious: Yes (Hospitalization)
  Sender: FDA-Public Use
  Company Number: US-JNJCH-2011000239

PATIENT
  Age: 20 Year
  Sex: Female

DRUGS (1)
  1. DIPHENHYDRAMINE [Suspect]
     Indication: SUICIDE ATTEMPT
     Dosage: TEXT:FIVE GRAMS
     Route: 048

REACTIONS (8)
  - OPSOCLONUS MYOCLONUS [None]
  - ELECTROCARDIOGRAM QRS COMPLEX PROLONGED [None]
  - SUICIDE ATTEMPT [None]
  - INTENTIONAL DRUG MISUSE [None]
  - SINUS TACHYCARDIA [None]
  - TOXICITY TO VARIOUS AGENTS [None]
  - CONVULSION [None]
  - INTENTIONAL OVERDOSE [None]
